FAERS Safety Report 14781288 (Version 1)
Quarter: 2018Q2

REPORT INFORMATION
  Report Type: Spontaneous
  Country: US (occurrence: US)
  Receive Date: 20180419
  Receipt Date: 20180419
  Transmission Date: 20180711
  Serious: No
  Sender: FDA-Public Use
  Company Number: US-B.I. PHARMACEUTICALS,INC./RIDGEFIELD-2018-BI-020775

PATIENT
  Age: 49 Year
  Sex: Female

DRUGS (2)
  1. COMBIVENT [Suspect]
     Active Substance: ALBUTEROL SULFATE\IPRATROPIUM BROMIDE
     Indication: ASTHMA
     Dosage: STRENGTH: 20 MCG / 100 MCG; FORM: INHALATION SPRAY ADMIN CORRECT? YES ACTION TAKEN: DOSE NOT CHANGED
     Route: 055
     Dates: start: 2010
  2. PULMOCORT [Concomitant]
     Indication: ASTHMA
     Route: 065

REACTIONS (2)
  - Off label use [Unknown]
  - Drug ineffective [Unknown]

NARRATIVE: CASE EVENT DATE: 2010
